FAERS Safety Report 5562526-7 (Version None)
Quarter: 2007Q4

REPORT INFORMATION
  Report Type: 
  Country: None (occurrence: None)
  Receive Date: 20071217
  Receipt Date: 20071128
  Transmission Date: 20080405
  Serious: Yes (Other)
  Sender: FDA-Public Use
  Company Number: US-BAYER-200715721NA

PATIENT
  Age: 24 Year
  Sex: Female
  Weight: 68 kg

DRUGS (1)
  1. MIRENA [Suspect]
     Indication: CONTRACEPTION
     Route: 015
     Dates: start: 20051123, end: 20071128

REACTIONS (3)
  - ABDOMINAL PAIN LOWER [None]
  - OVARIAN CYST [None]
  - VAGINAL HAEMORRHAGE [None]
